FAERS Safety Report 21183987 (Version 3)
Quarter: 2022Q4

REPORT INFORMATION
  Report Type: Report from Study
  Country: JP (occurrence: JP)
  Receive Date: 20220808
  Receipt Date: 20221122
  Transmission Date: 20230112
  Serious: Yes (Hospitalization)
  Sender: FDA-Public Use
  Company Number: JP-NOVARTISPH-NVSJ2022JP091769

PATIENT
  Age: 8 Year
  Sex: Male
  Weight: 20.6 kg

DRUGS (9)
  1. ILARIS [Suspect]
     Active Substance: CANAKINUMAB
     Indication: Familial mediterranean fever
     Dosage: 37.5 MG
     Route: 058
     Dates: start: 20220512
  2. ILARIS [Suspect]
     Active Substance: CANAKINUMAB
     Dosage: 37.5 MG
     Route: 058
     Dates: start: 20220526
  3. ILARIS [Suspect]
     Active Substance: CANAKINUMAB
     Dosage: 75 MG
     Route: 058
     Dates: start: 20220609
  4. ILARIS [Suspect]
     Active Substance: CANAKINUMAB
     Dosage: 75 MG
     Route: 058
     Dates: start: 20220707
  5. ILARIS [Suspect]
     Active Substance: CANAKINUMAB
     Dosage: 75 MG
     Route: 058
     Dates: start: 20220818, end: 20220922
  6. COLCHICINE [Suspect]
     Active Substance: COLCHICINE
     Indication: Familial mediterranean fever
     Dosage: 0.75 MG
     Route: 048
     Dates: start: 20220512, end: 20220608
  7. COLCHICINE [Suspect]
     Active Substance: COLCHICINE
     Dosage: 0.5 MG
     Route: 048
     Dates: start: 20220609, end: 20220719
  8. COLCHICINE [Suspect]
     Active Substance: COLCHICINE
     Dosage: 0.5 MG
     Route: 048
     Dates: end: 20221028
  9. COLCHICINE [Suspect]
     Active Substance: COLCHICINE
     Dosage: 1 MG
     Route: 048

REACTIONS (8)
  - COVID-19 [Recovered/Resolved]
  - Oropharyngeal pain [Recovering/Resolving]
  - Pyrexia [Recovered/Resolved]
  - Cough [Recovering/Resolving]
  - Rhinorrhoea [Recovering/Resolving]
  - Abdominal pain [Recovered/Resolved]
  - Diarrhoea [Recovering/Resolving]
  - Therapeutic response decreased [Unknown]

NARRATIVE: CASE EVENT DATE: 20220715
